FAERS Safety Report 7933417-9 (Version None)
Quarter: 2011Q4

REPORT INFORMATION
  Report Type: 
  Country: None (occurrence: None)
  Receive Date: 20111122
  Receipt Date: 20111122
  Transmission Date: 20120403
  Serious: Yes (Life-Threatening, Hospitalization)
  Sender: FDA-Public Use
  Company Number: None

PATIENT
  Age: 35 Year
  Sex: Female
  Weight: 59.874 kg

DRUGS (2)
  1. NITROFURANTOIN [Concomitant]
     Indication: CYSTOSCOPY
     Dosage: 1 CAPSULE
     Route: 048
     Dates: start: 20110927, end: 20110927
  2. NITROFURANTOIN MACROCRYSTALLINE [Suspect]
     Indication: CYSTITIS
     Dosage: 1 CAPSULE
     Route: 048
     Dates: start: 20110912, end: 20110913

REACTIONS (4)
  - BLOOD PRESSURE DECREASED [None]
  - BACK PAIN [None]
  - PNEUMONIA [None]
  - PULMONARY TOXICITY [None]
